FAERS Safety Report 15368810 (Version 2)
Quarter: 2018Q3

REPORT INFORMATION
  Report Type: Report from Study
  Country: US (occurrence: US)
  Receive Date: 20180911
  Receipt Date: 20180919
  Transmission Date: 20181010
  Serious: Yes (Death, Life-Threatening, Other)
  Sender: FDA-Public Use
  Company Number: US-TEVA-2018-US-952625

PATIENT
  Age: 50 Year
  Sex: Male

DRUGS (2)
  1. ARGATROBAN. [Suspect]
     Active Substance: ARGATROBAN
     Route: 065
  2. NOREPINEPHRINE. [Suspect]
     Active Substance: NOREPINEPHRINE
     Route: 065

REACTIONS (7)
  - Blister [Unknown]
  - Toxicity to various agents [Fatal]
  - Coagulopathy [Unknown]
  - Necrosis [Unknown]
  - Thrombocytopenia [Unknown]
  - Leukocytosis [Unknown]
  - Rhabdomyolysis [Unknown]
